FAERS Safety Report 9345513 (Version 2)
Quarter: 2013Q3

REPORT INFORMATION
  Report Type: Spontaneous
  Country: GB (occurrence: GB)
  Receive Date: 20130613
  Receipt Date: 20130701
  Transmission Date: 20140515
  Serious: Yes (Other)
  Sender: FDA-Public Use
  Company Number: GB-JNJFOC-20130522604

PATIENT
  Age: 15 Year
  Sex: Male

DRUGS (13)
  1. DOXORUBICIN [Suspect]
     Indication: EWING^S SARCOMA
     Route: 042
  2. DACTINOMYCIN [Suspect]
     Indication: EWING^S SARCOMA
     Route: 042
  3. ETOPOSIDE [Suspect]
     Indication: EWING^S SARCOMA
     Route: 042
  4. IFOSFAMIDE [Suspect]
     Indication: EWING^S SARCOMA
     Route: 042
  5. VINCRISTINE [Suspect]
     Indication: EWING^S SARCOMA
     Route: 042
  6. CYCLOPHOSPHAMIDE [Suspect]
     Indication: EWING^S SARCOMA
     Route: 065
  7. RADIOTHERAPY [Suspect]
     Indication: EWING^S SARCOMA
     Route: 065
  8. FENTANYL [Concomitant]
     Route: 065
  9. LOPERAMIDE [Concomitant]
     Route: 065
  10. PHOSPHATE-SANDOZ [Concomitant]
     Route: 065
  11. POTASSIUM BICARBONATE [Concomitant]
     Route: 065
  12. SODIUM BICARBONATE [Concomitant]
     Route: 065
  13. TOPIRAMATE [Concomitant]
     Route: 065

REACTIONS (3)
  - Renal tubular acidosis [Unknown]
  - Tubulointerstitial nephritis [Not Recovered/Not Resolved]
  - Off label use [Unknown]
